FAERS Safety Report 5141141-3 (Version None)
Quarter: 2006Q4

REPORT INFORMATION
  Report Type: 
  Country: None (occurrence: None)
  Receive Date: 20061101
  Receipt Date: 20061024
  Transmission Date: 20070319
  Serious: Yes (Life-Threatening, Hospitalization)
  Sender: FDA-Public Use
  Company Number: ES-AVENTIS-200621129GDDC

PATIENT
  Age: 91 Year
  Sex: Female

DRUGS (2)
  1. RIFATER                            /00812001/ [Suspect]
     Indication: BONE TUBERCULOSIS
     Dosage: DOSE: 5 TABS (100)
     Route: 048
     Dates: start: 20051217, end: 20051226
  2. RIFATER                            /00812001/ [Suspect]
     Dosage: DOSE: 4 TABLETS/24 HOURS
     Dates: start: 20060103

REACTIONS (1)
  - PANCREATITIS [None]
